FAERS Safety Report 6668097-6 (Version None)
Quarter: 2010Q2

REPORT INFORMATION
  Report Type: 
  Country: None (occurrence: None)
  Receive Date: 20100406
  Receipt Date: 20100326
  Transmission Date: 20101027
  Serious: Yes (Death, Other)
  Sender: FDA-Public Use
  Company Number: US-BIOGENIDEC-2010BI007990

PATIENT
  Age: 59 Year
  Sex: Female

DRUGS (1)
  1. TYSABRI [Suspect]
     Indication: MULTIPLE SCLEROSIS
     Route: 042
     Dates: start: 20071023, end: 20100202

REACTIONS (7)
  - ABDOMINAL HERNIA REPAIR [None]
  - AORTIC SURGERY [None]
  - ARTERIAL BYPASS OPERATION [None]
  - CARDIAC ARREST [None]
  - GALLBLADDER DISORDER [None]
  - IMPAIRED HEALING [None]
  - SUDDEN DEATH [None]
